FAERS Safety Report 5425929-7 (Version None)
Quarter: 2007Q3

REPORT INFORMATION
  Report Type: 
  Country: None (occurrence: None)
  Receive Date: 20070827
  Receipt Date: 20070821
  Transmission Date: 20080115
  Serious: Yes (Death, Hospitalization)
  Sender: FDA-Public Use
  Company Number: PT-BRISTOL-MYERS SQUIBB COMPANY-13885769

PATIENT
  Sex: Male
  Weight: 1 kg

DRUGS (1)
  1. AMPHOTERICIN B FOR INJECTION [Suspect]
     Indication: FUNGAL SEPSIS
     Route: 042

REACTIONS (1)
  - DEATH [None]
